FAERS Safety Report 4595101-1 (Version None)
Quarter: 2005Q1

REPORT INFORMATION
  Report Type: 
  Country: None (occurrence: None)
  Receive Date: 20050225
  Receipt Date: 20050210
  Transmission Date: 20050727
  Serious: Yes (Other)
  Sender: FDA-Public Use
  Company Number: A-US2003-02384

PATIENT
  Age: 36 Year
  Sex: Female

DRUGS (8)
  1. TRACLEER [Suspect]
     Indication: PULMONARY HYPERTENSION
     Dosage: 62.5 MG, BID, ORAL; 125 MG, BID, ORAL; 125 MG, BID
     Route: 048
     Dates: start: 20030228, end: 20030303
  2. TRACLEER [Suspect]
     Indication: PULMONARY HYPERTENSION
     Dosage: 62.5 MG, BID, ORAL; 125 MG, BID, ORAL; 125 MG, BID
     Route: 048
     Dates: start: 20030303, end: 20041216
  3. TRACLEER [Suspect]
     Indication: PULMONARY HYPERTENSION
     Dosage: 62.5 MG, BID, ORAL; 125 MG, BID, ORAL; 125 MG, BID
     Route: 048
     Dates: start: 20050103
  4. PROSTACYCLIN (EPOPROSTENOL) [Suspect]
  5. DIGOXIN [Concomitant]
  6. COUMADIN [Concomitant]
  7. IMODIUM [Concomitant]
  8. ALDACTONE [Concomitant]

REACTIONS (9)
  - ABORTION INDUCED [None]
  - DRUG EXPOSURE DURING PREGNANCY [None]
  - FATIGUE [None]
  - FLUSHING [None]
  - HEADACHE [None]
  - HEART RATE INCREASED [None]
  - NAUSEA [None]
  - PREGNANCY [None]
  - VISION BLURRED [None]
